FAERS Safety Report 7823172-5 (Version None)
Quarter: 2011Q4

REPORT INFORMATION
  Report Type: 
  Country: None (occurrence: None)
  Receive Date: 20111019
  Receipt Date: 20111011
  Transmission Date: 20120403
  Serious: No
  Sender: FDA-Public Use
  Company Number: US-BIOGENIDEC-2011BI038854

PATIENT
  Sex: Female

DRUGS (2)
  1. TYSABRI [Suspect]
     Indication: MULTIPLE SCLEROSIS
     Route: 042
     Dates: start: 20080812, end: 20100730
  2. TYSABRI [Suspect]
     Route: 042
     Dates: start: 20110429

REACTIONS (2)
  - NEUROPATHY PERIPHERAL [None]
  - VISUAL IMPAIRMENT [None]
